FAERS Safety Report 4308242-0 (Version None)
Quarter: 2004Q1

REPORT INFORMATION
  Report Type: 
  Country: None (occurrence: None)
  Receive Date: 20040301
  Receipt Date: 20030918
  Transmission Date: 20041129
  Serious: No
  Sender: FDA-Public Use
  Company Number: PR-BRISTOL-MYERS SQUIBB COMPANY-12389367

PATIENT
  Age: 65 Year
  Sex: Female
  Weight: 113 kg

DRUGS (4)
  1. GLUCOPHAGE [Suspect]
     Indication: DIABETES MELLITUS
     Route: 048
  2. HYZAAR [Concomitant]
  3. NORVASC [Concomitant]
  4. ZOCOR [Concomitant]

REACTIONS (1)
  - DIARRHOEA [None]
